FAERS Safety Report 9787825 (Version 3)
Quarter: 2014Q1

REPORT INFORMATION
  Report Type: Spontaneous
  Country: US (occurrence: US)
  Receive Date: 20131230
  Receipt Date: 20140130
  Transmission Date: 20141002
  Serious: No
  Sender: FDA-Public Use
  Company Number: US-PFIZER INC-2013368102

PATIENT
  Age: 69 Year
  Sex: Female
  Weight: 59.86 kg

DRUGS (4)
  1. TOVIAZ [Suspect]
     Indication: HYPERTONIC BLADDER
     Dosage: 4 MG, 1X/DAY
     Route: 048
     Dates: start: 20131107, end: 20131127
  2. XANAX [Concomitant]
     Dosage: UNK
  3. CELEBREX [Concomitant]
     Dosage: UNK
  4. TRAZODONE [Concomitant]
     Dosage: ONCE AT NIGHT

REACTIONS (7)
  - Vision blurred [Recovered/Resolved]
  - Drug intolerance [Recovered/Resolved]
  - Constipation [Recovered/Resolved]
  - Pollakiuria [Recovered/Resolved]
  - Tongue disorder [Recovered/Resolved]
  - Breath odour [Recovered/Resolved]
  - Dry mouth [Recovered/Resolved]
